FAERS Safety Report 7930504-6 (Version None)
Quarter: 2011Q4

REPORT INFORMATION
  Report Type: 
  Country: None (occurrence: None)
  Receive Date: 20111117
  Receipt Date: 20111102
  Transmission Date: 20120403
  Serious: Yes (Hospitalization, Other)
  Sender: FDA-Public Use
  Company Number: 2011MA015987

PATIENT
  Age: 74 Year
  Sex: Male

DRUGS (2)
  1. CARBIDOPA AND LEVODOPA [Suspect]
     Indication: PARKINSON'S DISEASE
     Dosage: 250 / 25 MG;12 TABS;QD;PO
     Route: 048
  2. LEVODOPA/BENSERAZIDE [Concomitant]

REACTIONS (5)
  - RENAL FAILURE ACUTE [None]
  - NO THERAPEUTIC RESPONSE [None]
  - MOBILITY DECREASED [None]
  - RHABDOMYOLYSIS [None]
  - DYSKINESIA [None]
